FAERS Safety Report 9097000 (Version 1)
Quarter: 2013Q1

REPORT INFORMATION
  Report Type: Spontaneous
  Country: SE (occurrence: None)
  Receive Date: 20130124
  Receipt Date: 20130124
  Transmission Date: 20140127
  Serious: Yes (Other)
  Sender: FDA-Public Use
  Company Number: DSA_62040_2013

PATIENT
  Age: 30 Year
  Sex: Male

DRUGS (2)
  1. FLAGYL /00012501/ [Suspect]
     Indication: TOOTH INFECTION
     Dosage: DF
  2. KAVEPENIN [Suspect]
     Indication: TOOTH INFECTION
     Dosage: (DF)

REACTIONS (1)
  - Serum sickness [None]
